FAERS Safety Report 8214058-5 (Version None)
Quarter: 2012Q1

REPORT INFORMATION
  Report Type: 
  Country: None (occurrence: None)
  Receive Date: 20120314
  Receipt Date: 20120314
  Transmission Date: 20120608
  Serious: Yes (Death)
  Sender: FDA-Public Use
  Company Number: None

PATIENT
  Age: 83 Year
  Sex: Female

DRUGS (18)
  1. BUMEX [Concomitant]
  2. URSODIOL [Concomitant]
  3. COREG [Concomitant]
  4. LISINOPRIL [Concomitant]
  5. LOVENOX [Suspect]
     Indication: CEREBROVASCULAR ACCIDENT
     Dosage: 70 MG Q/2H SQ RECENT
     Route: 058
  6. WARFARIN SODIUM [Suspect]
     Indication: CEREBROVASCULAR ACCIDENT
     Dosage: 2 G DAILY PO RECENT
  7. TYLENOL [Concomitant]
  8. AFIB [Concomitant]
  9. DULCOLAX [Concomitant]
  10. CELEXA [Concomitant]
  11. COLACE [Concomitant]
  12. VESICARE [Concomitant]
  13. LIPITOR [Concomitant]
  14. ALDACTONE [Concomitant]
  15. LANOXIN [Concomitant]
  16. PEPCID [Concomitant]
  17. LACTULOSE [Concomitant]
  18. ASPIRIN [Concomitant]

REACTIONS (2)
  - HAEMORRHAGIC STROKE [None]
  - DYSPNOEA [None]
